FAERS Safety Report 8987637 (Version 1)
Quarter: 2012Q4

REPORT INFORMATION
  Report Type: 
  Country: US (occurrence: US)
  Receive Date: 20121227
  Receipt Date: 20121227
  Transmission Date: 20130627
  Serious: Yes (Other)
  Sender: FDA-Public Use
  Company Number: US-BAYER-2012-133379

PATIENT
  Age: 36 Year
  Sex: Male

DRUGS (4)
  1. ALKA-SELTZER PLUS COLD + COUGH [Suspect]
     Dosage: 1 DF, ONCE
     Route: 048
  2. IBUPROFEN [Suspect]
  3. BLOOD PRESSURE MEDICATION (NOS) [Concomitant]
  4. SOPHINIA [Concomitant]

REACTIONS (5)
  - Drug hypersensitivity [None]
  - Pharyngeal oedema [None]
  - Dyspnoea [None]
  - Lip swelling [None]
  - Oedema mouth [None]
